FAERS Safety Report 7662035-5 (Version None)
Quarter: 2011Q3

REPORT INFORMATION
  Report Type: 
  Country: None (occurrence: None)
  Receive Date: 20110805
  Receipt Date: 20101207
  Transmission Date: 20111222
  Serious: No
  Sender: FDA-Public Use
  Company Number: US-ABBOTT-10P-163-0690133-00

PATIENT
  Sex: Female
  Weight: 90.8 kg

DRUGS (5)
  1. TOPROL-XL [Concomitant]
     Indication: HYPERTENSION
  2. LEVOTHYROXINE SODIUM [Concomitant]
     Indication: HYPOTHYROIDISM
  3. PRILOSEC OTC [Concomitant]
     Indication: GASTROOESOPHAGEAL REFLUX DISEASE
  4. NIASPAN [Suspect]
     Indication: BLOOD CHOLESTEROL INCREASED
     Dates: start: 20101109, end: 20101201
  5. ASPIRIN [Concomitant]
     Indication: PRODUCT USED FOR UNKNOWN INDICATION

REACTIONS (3)
  - BURNING SENSATION [None]
  - FLUSHING [None]
  - MYALGIA [None]
